FAERS Safety Report 6486924-2 (Version None)
Quarter: 2009Q4

REPORT INFORMATION
  Report Type: 
  Country: None (occurrence: None)
  Receive Date: 20091210
  Receipt Date: 20091130
  Transmission Date: 20100525
  Serious: Yes (Hospitalization)
  Sender: FDA-Public Use
  Company Number: US-AMGEN-QUU377601

PATIENT
  Sex: Female

DRUGS (1)
  1. ENBREL [Suspect]
     Indication: RHEUMATOID ARTHRITIS
     Route: 058

REACTIONS (4)
  - CEREBRAL HAEMORRHAGE [None]
  - HEPATIC HAEMORRHAGE [None]
  - OESOPHAGEAL PERFORATION [None]
  - PROCEDURAL COMPLICATION [None]
